FAERS Safety Report 6262236-7 (Version None)
Quarter: 2009Q3

REPORT INFORMATION
  Report Type: 
  Country: None (occurrence: None)
  Receive Date: 20090702
  Receipt Date: 20090508
  Transmission Date: 20100115
  Serious: No
  Sender: FDA-Public Use
  Company Number: 1000006150

PATIENT
  Age: 62 Year
  Sex: Male

DRUGS (5)
  1. BYSTOLIC [Suspect]
     Indication: HYPERTENSION
     Dosage: 5 MG (5 MG, 1 IN1 D), ORAL
     Route: 048
     Dates: start: 20090420, end: 20090501
  2. PRAVACHOL (20 MILLIGRAM) [Concomitant]
  3. ASPIRIN (81 MILLIGRAM) [Concomitant]
  4. SYNTHROID (25 MICROGRAM) [Concomitant]
  5. SINGULAIR (10 MILLIGRAM) [Concomitant]

REACTIONS (2)
  - DYSPEPSIA [None]
  - GASTROOESOPHAGEAL REFLUX DISEASE [None]
